FAERS Safety Report 18415875 (Version 1)
Quarter: 2020Q4

REPORT INFORMATION
  Report Type: Spontaneous
  Country: PR (occurrence: PR)
  Receive Date: 20201022
  Receipt Date: 20201022
  Transmission Date: 20210114
  Serious: Yes (Other)
  Sender: FDA-Public Use
  Company Number: None

PATIENT
  Age: 69 Year
  Sex: Female

DRUGS (1)
  1. DUPIXENT [Suspect]
     Active Substance: DUPILUMAB
     Indication: PSORIASIS
     Dosage: ?          OTHER FREQUENCY:EVERY TWO WEEKS;??
     Route: 058
     Dates: start: 20200818, end: 20200930

REACTIONS (4)
  - Chest pain [None]
  - Dyspnoea [None]
  - Therapy cessation [None]
  - Blindness [None]

NARRATIVE: CASE EVENT DATE: 20200930
